FAERS Safety Report 16145543 (Version 1)
Quarter: 2019Q2

REPORT INFORMATION
  Report Type: Spontaneous
  Country: US (occurrence: US)
  Receive Date: 20190401
  Receipt Date: 20190401
  Transmission Date: 20190711
  Serious: Yes (Other)
  Sender: FDA-Public Use
  Company Number: None

PATIENT
  Age: 83 Year
  Sex: Female
  Weight: 95.72 kg

DRUGS (22)
  1. SPRYCEL [Suspect]
     Active Substance: DASATINIB
     Indication: MYELOID LEUKAEMIA
     Route: 048
     Dates: start: 20190204
  2. KLOR-CON M20 [Concomitant]
     Active Substance: POTASSIUM CHLORIDE
  3. LOSARTAN. [Concomitant]
     Active Substance: LOSARTAN
  4. TRIAMCINOLONE ACETONIDE. [Concomitant]
     Active Substance: TRIAMCINOLONE ACETONIDE
  5. METFORMIN [Concomitant]
     Active Substance: METFORMIN HYDROCHLORIDE
  6. LEVOTHYROXINE. [Concomitant]
     Active Substance: LEVOTHYROXINE
  7. METOPROLOL TARTRATE. [Concomitant]
     Active Substance: METOPROLOL TARTRATE
  8. DOCUSATE [Concomitant]
     Active Substance: DOCUSATE
  9. AMLODIPINE [Concomitant]
     Active Substance: AMLODIPINE BESYLATE
  10. SYSTANE (HYPROMELLOSE 2910 (4000 MPA.S)) [Concomitant]
     Active Substance: HYPROMELLOSE 2910 (4000 MPA.S)
  11. ASPIRIN. [Concomitant]
     Active Substance: ASPIRIN
  12. IMATONOB MESYLATE [Concomitant]
  13. NITROFURANTOIN MACROCRYSTALS [Concomitant]
     Active Substance: NITROFURANTOIN
  14. MECLIZINE [Concomitant]
     Active Substance: MECLIZINE HYDROCHLORIDE
  15. MAGNISIUM OXIDE [Concomitant]
  16. VITAMIN B [Concomitant]
     Active Substance: VITAMIN B
  17. ESTRACE [Concomitant]
     Active Substance: ESTRADIOL
  18. SIMVASTATIN. [Concomitant]
     Active Substance: SIMVASTATIN
  19. MULTIVITAMINS [Concomitant]
     Active Substance: VITAMINS
  20. FAMOTIDINE. [Concomitant]
     Active Substance: FAMOTIDINE
  21. GLEEVEC [Concomitant]
     Active Substance: IMATINIB MESYLATE
  22. HYDROCHLOROTHIAZIDE. [Concomitant]
     Active Substance: HYDROCHLOROTHIAZIDE

REACTIONS (2)
  - Dyspnoea [None]
  - Muscle atrophy [None]
